FAERS Safety Report 12310929 (Version 1)
Quarter: 2016Q2

REPORT INFORMATION
  Report Type: Spontaneous
  Country: US (occurrence: US)
  Receive Date: 20160427
  Receipt Date: 20160427
  Transmission Date: 20160815
  Serious: No
  Sender: FDA-Public Use
  Company Number: US-TEVA-654899USA

PATIENT
  Age: 42 Year
  Sex: Female

DRUGS (4)
  1. SEASONIQUE [Suspect]
     Active Substance: ETHINYL ESTRADIOL\LEVONORGESTREL
     Indication: CONTRACEPTION
     Dates: start: 20160420
  2. IRON [Concomitant]
     Active Substance: IRON
  3. NORETHINDRONE. [Concomitant]
     Active Substance: NORETHINDRONE
     Indication: MENORRHAGIA
  4. ASPIRIN. [Concomitant]
     Active Substance: ASPIRIN

REACTIONS (1)
  - Menstruation irregular [Unknown]

NARRATIVE: CASE EVENT DATE: 20160421
